FAERS Safety Report 10563764 (Version 2)
Quarter: 2015Q1

REPORT INFORMATION
  Report Type: Spontaneous
  Country: US (occurrence: US)
  Receive Date: 20141104
  Receipt Date: 20150210
  Transmission Date: 20150720
  Serious: No
  Sender: FDA-Public Use
  Company Number: US-GLAXOSMITHKLINE-US2014GSK015436

PATIENT
  Age: 73 Year
  Sex: Male
  Weight: 88.89 kg

DRUGS (2)
  1. VOTRIENT [Suspect]
     Active Substance: PAZOPANIB HYDROCHLORIDE
     Indication: RENAL CANCER
     Dosage: 2-4 TABLETS DAILY AS DIRECTED
     Route: 048
     Dates: start: 201407, end: 201408
  2. AVAPRO [Concomitant]
     Active Substance: IRBESARTAN

REACTIONS (2)
  - Hypertension [Not Recovered/Not Resolved]
  - Hepatic enzyme increased [Not Recovered/Not Resolved]

NARRATIVE: CASE EVENT DATE: 201408
